FAERS Safety Report 6206788-1 (Version None)
Quarter: 2009Q2

REPORT INFORMATION
  Report Type: 
  Country: None (occurrence: None)
  Receive Date: 20090528
  Receipt Date: 20090518
  Transmission Date: 20091009
  Serious: Yes (Life-Threatening, Hospitalization)
  Sender: FDA-Public Use
  Company Number: TR-AVENTIS-200915207GDDC

PATIENT
  Age: 23 Year
  Sex: Female
  Weight: 51 kg

DRUGS (8)
  1. KETEK [Suspect]
     Indication: SINUSITIS
     Route: 048
     Dates: start: 20090327, end: 20090408
  2. AMPISID [Suspect]
  3. ARVELES [Concomitant]
     Route: 048
  4. RINOGEST                           /00076302/ [Concomitant]
     Route: 048
  5. MUCOPLUS [Concomitant]
     Route: 048
     Dates: start: 20090327, end: 20090412
  6. ILIADIN [Concomitant]
     Route: 045
  7. SUDAFED 12 HOUR [Concomitant]
     Route: 048
     Dates: start: 20090327, end: 20090412
  8. NASACORT [Concomitant]
     Route: 055
     Dates: start: 20090327, end: 20090412

REACTIONS (5)
  - DIZZINESS [None]
  - FATIGUE [None]
  - HEPATITIS TOXIC [None]
  - NAUSEA [None]
  - VOMITING [None]
